FAERS Safety Report 7734180-7 (Version None)
Quarter: 2011Q3

REPORT INFORMATION
  Report Type: 
  Country: None (occurrence: None)
  Receive Date: 20110906
  Receipt Date: 20110906
  Transmission Date: 20111222
  Serious: Yes (Other)
  Sender: FDA-Public Use
  Company Number: None

PATIENT
  Age: 9 Year
  Sex: Male
  Weight: 25 kg

DRUGS (1)
  1. OXYBUTYNIN [Suspect]
     Indication: NEUROGENIC BLADDER
     Dosage: 15 MG ER DAILY

REACTIONS (2)
  - PRODUCT SUBSTITUTION ISSUE [None]
  - URINARY INCONTINENCE [None]
